FAERS Safety Report 11680675 (Version 1)
Quarter: 2015Q4

REPORT INFORMATION
  Report Type: Spontaneous
  Country: TR (occurrence: TR)
  Receive Date: 20151029
  Receipt Date: 20151029
  Transmission Date: 20160304
  Serious: Yes (Life-Threatening, Hospitalization)
  Sender: FDA-Public Use
  Company Number: PHHY2015TR139323

PATIENT
  Sex: Male

DRUGS (1)
  1. AMITRIPTYLINE [Suspect]
     Active Substance: AMITRIPTYLINE
     Indication: PRODUCT USED FOR UNKNOWN INDICATION
     Dosage: 16 MG/KG, UNK
     Route: 065

REACTIONS (3)
  - Seizure [Recovering/Resolving]
  - Hyponatraemia [Recovering/Resolving]
  - Overdose [Recovering/Resolving]
